FAERS Safety Report 10154295 (Version 1)
Quarter: 2014Q2

REPORT INFORMATION
  Report Type: Spontaneous
  Country: CN (occurrence: None)
  Receive Date: 20140502
  Receipt Date: 20140502
  Transmission Date: 20141212
  Serious: Yes (Other)
  Sender: FDA-Public Use
  Company Number: 2014000119

PATIENT
  Age: 45 Year
  Sex: Female
  Weight: 46 kg

DRUGS (8)
  1. ACEON (PERINDOPRIL ERBUMINE) TABLET, 8MG [Suspect]
     Indication: HYPERTENSION
     Route: 048
     Dates: start: 20130302, end: 20130426
  2. ATORVASTATIN CALCIUM (ATORVASTATIN CALCIUM) [Concomitant]
  3. BENZBROMARONE (BENZBROMARONE) [Concomitant]
  4. METHYLPREDNISOLONE (METHYLPREDNISOLONE) [Concomitant]
  5. CALTRATE + VITAMIN D (CALCIUM CARBONATE, COLECALCIFEROL) [Concomitant]
  6. LACIDIPINE (LACIDIPINE) [Concomitant]
  7. RABEPRAZOLE SODIUM (RABEPRAZOLE SODIUM) [Concomitant]
  8. CLOPIDOGREL BISULFATE (CLOPIDOGREL BISULFATE) [Concomitant]

REACTIONS (9)
  - Lung infection [None]
  - Pyrexia [None]
  - Dyspnoea [None]
  - Pleural effusion [None]
  - Cough [None]
  - Pericardial effusion [None]
  - Emphysema [None]
  - Initial insomnia [None]
  - Lymphadenopathy [None]
